FAERS Safety Report 23553441 (Version 1)
Quarter: 2024Q1

REPORT INFORMATION
  Report Type: Spontaneous
  Country: US (occurrence: US)
  Receive Date: 20240222
  Receipt Date: 20240222
  Transmission Date: 20240410
  Serious: Yes (Other)
  Sender: FDA-Public Use
  Company Number: US-AMGEN-USASP2024031552

PATIENT
  Age: 77 Year
  Sex: Female

DRUGS (5)
  1. PROLIA [Suspect]
     Active Substance: DENOSUMAB
     Indication: Osteoporosis postmenopausal
     Dosage: UNK UNK, Q6MO
     Route: 065
  2. AMLODIPINE [Concomitant]
     Active Substance: AMLODIPINE BESYLATE
  3. CRESTOR [Concomitant]
     Active Substance: ROSUVASTATIN CALCIUM
     Dosage: 40 MILLIGRAM
  4. CALCIUM [Concomitant]
     Active Substance: CALCIUM
  5. VITAMIN D [Concomitant]
     Active Substance: VITAMIN D NOS

REACTIONS (10)
  - Skin cancer [Unknown]
  - Cataract [Unknown]
  - Sleep apnoea syndrome [Unknown]
  - Loose tooth [Unknown]
  - Rash erythematous [Recovered/Resolved]
  - Dental prosthesis placement [Unknown]
  - Dental implantation [Unknown]
  - Tooth extraction [Recovered/Resolved]
  - Rash pruritic [Recovered/Resolved]
  - Tooth infection [Unknown]
